FAERS Safety Report 13182462 (Version 8)
Quarter: 2017Q2

REPORT INFORMATION
  Report Type: Spontaneous
  Country: US (occurrence: US)
  Receive Date: 20170202
  Receipt Date: 20170620
  Transmission Date: 20170830
  Serious: Yes (Other)
  Sender: FDA-Public Use
  Company Number: US-TEVA-732227ACC

PATIENT
  Age: 44 Year
  Sex: Female

DRUGS (1)
  1. NUVIGIL [Suspect]
     Active Substance: ARMODAFINIL
     Route: 065

REACTIONS (2)
  - Tooth abscess [Recovered/Resolved with Sequelae]
  - Oral infection [Unknown]

NARRATIVE: CASE EVENT DATE: 201703
